FAERS Safety Report 9135768 (Version 1)
Quarter: 2013Q1

REPORT INFORMATION
  Report Type: Spontaneous
  Country: ES (occurrence: ES)
  Receive Date: 20130304
  Receipt Date: 20130304
  Transmission Date: 20140127
  Serious: Yes (Hospitalization)
  Sender: FDA-Public Use
  Company Number: ES-GILEAD-2013-0071000

PATIENT
  Age: 33 Year
  Sex: Male

DRUGS (3)
  1. ATRIPLA [Suspect]
     Indication: HIV INFECTION
     Dosage: 1 COMPRIMIDO CADA 24 HORAS
     Route: 048
     Dates: start: 20120911, end: 20121031
  2. SUSTIVA [Suspect]
     Indication: HIV INFECTION
     Route: 048
     Dates: start: 20120911, end: 20121031
  3. RIFINAH [Concomitant]
     Dosage: 2 COMP CADA 24 HORAS
     Route: 048
     Dates: start: 20120628

REACTIONS (1)
  - Hepatitis cholestatic [Recovered/Resolved]
